FAERS Safety Report 17141392 (Version 5)
Quarter: 2020Q1

REPORT INFORMATION
  Report Type: Spontaneous
  Country: CO (occurrence: CO)
  Receive Date: 20191211
  Receipt Date: 20200313
  Transmission Date: 20200409
  Serious: Yes (Other)
  Sender: FDA-Public Use
  Company Number: CO-EMD SERONO-9133727

PATIENT
  Age: 63 Year
  Sex: Female
  Weight: 52 kg

DRUGS (13)
  1. LOSARTAN. [Suspect]
     Active Substance: LOSARTAN
     Indication: PRODUCT USED FOR UNKNOWN INDICATION
  2. ATORVASTATIN [Suspect]
     Active Substance: ATORVASTATIN
     Indication: PRODUCT USED FOR UNKNOWN INDICATION
  3. AMLODIPINE [Suspect]
     Active Substance: AMLODIPINE BESYLATE
     Indication: PRODUCT USED FOR UNKNOWN INDICATION
  4. REVOLADE [Suspect]
     Active Substance: ELTROMBOPAG
     Route: 048
     Dates: start: 20181012
  5. METFORMIN HYDROCHLORIDE. [Suspect]
     Active Substance: METFORMIN HYDROCHLORIDE
     Indication: DIABETES MELLITUS
  6. REVOLADE [Suspect]
     Active Substance: ELTROMBOPAG
     Route: 048
  7. REVOLADE [Suspect]
     Active Substance: ELTROMBOPAG
     Route: 048
  8. REVOLADE [Suspect]
     Active Substance: ELTROMBOPAG
     Route: 048
  9. REVOLADE [Suspect]
     Active Substance: ELTROMBOPAG
     Route: 048
  10. REVOLADE [Suspect]
     Active Substance: ELTROMBOPAG
     Dosage: ONE TABLET OF 50 MG ON MONDAYS AND FRIDAYS AND 25 MG ON TUESDAYS, WEDNESDAYS AND THURSDAYS
     Route: 048
  11. HYDROCHLOROTHIAZIDE. [Concomitant]
     Active Substance: HYDROCHLOROTHIAZIDE
     Indication: PRODUCT USED FOR UNKNOWN INDICATION
  12. REVOLADE [Suspect]
     Active Substance: ELTROMBOPAG
     Indication: IMMUNE THROMBOCYTOPENIC PURPURA
     Route: 048
     Dates: start: 20181002
  13. REVOLADE [Suspect]
     Active Substance: ELTROMBOPAG

REACTIONS (19)
  - Diarrhoea [Unknown]
  - Pain [Unknown]
  - Platelet count increased [Unknown]
  - Dyspepsia [Recovering/Resolving]
  - Alopecia [Recovering/Resolving]
  - Myelofibrosis [Unknown]
  - Petechiae [Unknown]
  - Haematoma [Unknown]
  - Malaise [Recovering/Resolving]
  - Skin disorder [Recovering/Resolving]
  - Abdominal discomfort [Recovering/Resolving]
  - Contusion [Unknown]
  - Platelet count decreased [Unknown]
  - Skin hyperpigmentation [Recovering/Resolving]
  - Platelet disorder [Unknown]
  - Dry skin [Unknown]
  - Gastritis [Not Recovered/Not Resolved]
  - Pain in extremity [Unknown]
  - Hair colour changes [Unknown]
